FAERS Safety Report 7852476-5 (Version None)
Quarter: 2011Q3

REPORT INFORMATION
  Report Type: 
  Country: None (occurrence: None)
  Receive Date: 20110906
  Receipt Date: 20110531
  Transmission Date: 20111222
  Serious: No
  Sender: FDA-Public Use
  Company Number: 201105024

PATIENT
  Age: 64 Year
  Sex: Male

DRUGS (3)
  1. LIDOCAINE [Suspect]
     Dosage: INJECTION
     Dates: start: 20110505, end: 20110505
  2. XIAFLEX [Suspect]
     Indication: DUPUYTREN'S CONTRACTURE
     Dosage: 0.58 MG, 1 IN 1 D, INTRALESIONAL
     Route: 026
     Dates: start: 20110504, end: 20110504
  3. MARCAINE [Suspect]
     Dosage: INJECTION
     Dates: start: 20110505, end: 20110505

REACTIONS (2)
  - DRUG INEFFECTIVE [None]
  - DISCOMFORT [None]
